FAERS Safety Report 8840005 (Version 1)
Quarter: 2012Q4

REPORT INFORMATION
  Report Type: Spontaneous
  Country: US (occurrence: None)
  Receive Date: 20121012
  Receipt Date: 20121012
  Transmission Date: 20130627
  Serious: Yes (Other)
  Sender: FDA-Public Use
  Company Number: None

PATIENT
  Age: 48 Year
  Sex: Male
  Weight: 113.4 kg

DRUGS (2)
  1. SIMVASTATIN [Suspect]
     Indication: LOW DENSITY LIPOPROTEIN CHOLESTEROL HIGH
     Route: 048
     Dates: start: 20120301, end: 20121010
  2. SIMVASTATIN [Suspect]
     Indication: LOW HDL
     Route: 048
     Dates: start: 20120301, end: 20121010

REACTIONS (3)
  - Myalgia [None]
  - Arthralgia [None]
  - Abasia [None]
